FAERS Safety Report 23357484 (Version 1)
Quarter: 2024Q1

REPORT INFORMATION
  Report Type: Spontaneous
  Country: PL (occurrence: PL)
  Receive Date: 20240102
  Receipt Date: 20240102
  Transmission Date: 20240410
  Serious: Yes (Other)
  Sender: FDA-Public Use
  Company Number: None

PATIENT
  Age: 35 Year
  Sex: Male
  Weight: 68 kg

DRUGS (2)
  1. ZOLPIDEM [Suspect]
     Active Substance: ZOLPIDEM TARTRATE
     Indication: Product used for unknown indication
     Dosage: DOASGE: UNKNOWN
     Route: 048
  2. TIZANIDINE [Suspect]
     Active Substance: TIZANIDINE
     Indication: Product used for unknown indication
     Dosage: DOASGE: UNKNOWN
     Route: 048

REACTIONS (5)
  - Suicide attempt [Unknown]
  - Drug abuse [Unknown]
  - Balance disorder [Unknown]
  - Toxicity to various agents [Unknown]
  - Somnolence [Unknown]

NARRATIVE: CASE EVENT DATE: 20210207
